FAERS Safety Report 9979353 (Version 1)
Quarter: 2014Q1

REPORT INFORMATION
  Report Type: Report from Study
  Country: US (occurrence: US)
  Receive Date: 20140306
  Receipt Date: 20140306
  Transmission Date: 20141002
  Serious: No
  Sender: FDA-Public Use
  Company Number: US-ABBVIE-13P-163-1173706-00

PATIENT
  Age: 69 Year
  Sex: Female

DRUGS (10)
  1. HUMIRA [Suspect]
     Indication: CROHN^S DISEASE
     Dates: start: 20130812
  2. OXYBUTYNIN [Suspect]
     Indication: PRODUCT USED FOR UNKNOWN INDICATION
  3. RESTASIS [Concomitant]
     Indication: LACRIMAL DISORDER
     Dosage: DROPS, EACH EYE
  4. VENLAFAXINE [Concomitant]
     Indication: DEPRESSION
     Dosage: IN THE AM
  5. SULFA [Concomitant]
     Indication: INSOMNIA
     Dosage: EVERY NIGHT
  6. GLUCOSAMINE [Concomitant]
     Indication: PRODUCT USED FOR UNKNOWN INDICATION
  7. MAGNESIUM [Concomitant]
     Indication: PRODUCT USED FOR UNKNOWN INDICATION
  8. CALCIUM [Concomitant]
     Indication: PRODUCT USED FOR UNKNOWN INDICATION
  9. VITAMIN D [Concomitant]
     Indication: PRODUCT USED FOR UNKNOWN INDICATION
  10. VITAMIN B12 [Concomitant]
     Indication: PRODUCT USED FOR UNKNOWN INDICATION
     Dosage: EVERY DAY

REACTIONS (11)
  - Defaecation urgency [Unknown]
  - Glossodynia [Unknown]
  - Fatigue [Unknown]
  - Asthenia [Unknown]
  - Arthropathy [Unknown]
  - Crohn^s disease [Not Recovered/Not Resolved]
  - Abdominal pain [Not Recovered/Not Resolved]
  - Diarrhoea [Recovered/Resolved]
  - Arthralgia [Unknown]
  - Drug ineffective [Unknown]
  - Diarrhoea [Unknown]
